FAERS Safety Report 9734399 (Version 2)
Quarter: 2013Q4

REPORT INFORMATION
  Report Type: Report from Study
  Country: DE (occurrence: DE)
  Receive Date: 20131206
  Receipt Date: 20131209
  Transmission Date: 20140711
  Serious: Yes (Hospitalization)
  Sender: FDA-Public Use
  Company Number: DE-BEH-2013039176

PATIENT
  Age: 69 Year
  Sex: Female
  Weight: 80 kg

DRUGS (6)
  1. PRIVIGEN [Suspect]
     Indication: IMMUNOGLOBULINS DECREASED
     Dosage: INFUSION RATE 98 ML/MIN
     Route: 042
     Dates: start: 20130729, end: 20130729
  2. PRIVIGEN [Suspect]
     Indication: SECONDARY IMMUNODEFICIENCY
     Dosage: INFUSION RATE 98 ML/MIN
     Route: 042
     Dates: start: 20130923, end: 20130923
  3. TOREM 10 [Concomitant]
     Indication: CARDIAC DISORDER
     Dosage: PERMANENTLY
     Route: 048
  4. BELOC ZOK MITE [Concomitant]
     Indication: CARDIAC DISORDER
     Dosage: PERMANENTLY
     Route: 048
  5. SPIRIVA [Concomitant]
     Indication: CHRONIC OBSTRUCTIVE PULMONARY DISEASE
     Dosage: PERMANENTLY
     Route: 048
  6. DELIX 5 [Concomitant]
     Indication: CARDIAC DISORDER
     Dosage: ONGOING
     Route: 048
     Dates: start: 20130817

REACTIONS (8)
  - Chronic obstructive pulmonary disease [Recovered/Resolved with Sequelae]
  - Infection [Recovered/Resolved with Sequelae]
  - Respiratory failure [Recovered/Resolved with Sequelae]
  - Tracheobronchitis [Recovered/Resolved with Sequelae]
  - Dyspnoea exertional [Recovered/Resolved with Sequelae]
  - General physical health deterioration [Recovered/Resolved with Sequelae]
  - Productive cough [Recovered/Resolved with Sequelae]
  - Night sweats [Recovered/Resolved with Sequelae]
